FAERS Safety Report 5237328-1 (Version None)
Quarter: 2007Q1

REPORT INFORMATION
  Report Type: 
  Country: None (occurrence: None)
  Receive Date: 20070213
  Receipt Date: 20070208
  Transmission Date: 20070707
  Serious: Yes (Hospitalization)
  Sender: FDA-Public Use
  Company Number: GB-SANOFI-SYNTHELABO-D01200700418

PATIENT
  Sex: Male
  Weight: 82.7 kg

DRUGS (4)
  1. LEUCOVORIN CALCIUM [Suspect]
     Route: 042
     Dates: start: 20070104, end: 20070104
  2. FLUOROURACIL [Suspect]
     Dosage: 400 MG/M?, IV BOLUS D1+D2 FOLLOWED BY 5-FU 2400 MG/M? OVER 46-HOUR CONTINUOUS INFUSION.
     Route: 042
     Dates: start: 20070104, end: 20070106
  3. OXALIPLATIN [Suspect]
     Route: 042
     Dates: start: 20070104, end: 20070104
  4. SR57746 OR PLACEBO [Suspect]
     Indication: NEUROLOGICAL SYMPTOM
     Route: 048
     Dates: start: 20061124, end: 20070118

REACTIONS (1)
  - PULMONARY EMBOLISM [None]
